FAERS Safety Report 11754538 (Version 3)
Quarter: 2016Q1

REPORT INFORMATION
  Report Type: Report from Study
  Country: AU (occurrence: AU)
  Receive Date: 20151119
  Receipt Date: 20160104
  Transmission Date: 20160525
  Serious: Yes (Hospitalization, Other)
  Sender: FDA-Public Use
  Company Number: AU-IPSEN BIOPHARMACEUTICALS, INC.-2015-08543

PATIENT
  Age: 73 Year
  Sex: Female

DRUGS (2)
  1. INSULIN [Concomitant]
     Active Substance: INSULIN NOS
     Indication: PRODUCT USED FOR UNKNOWN INDICATION
     Dosage: NOT REPORTED
     Route: 065
  2. SOMATULINE AUTOGEL [Suspect]
     Active Substance: LANREOTIDE ACETATE
     Indication: CARCINOID TUMOUR
     Dosage: 120 MG
     Route: 058
     Dates: start: 20150815

REACTIONS (6)
  - Palpitations [Recovering/Resolving]
  - Dyspnoea [Recovering/Resolving]
  - Fatigue [Recovering/Resolving]
  - Diabetes mellitus [Recovered/Resolved]
  - Dyspnoea [Recovering/Resolving]
  - Palpitations [Recovering/Resolving]

NARRATIVE: CASE EVENT DATE: 20151021
